FAERS Safety Report 24716957 (Version 2)
Quarter: 2025Q3

REPORT INFORMATION
  Report Type: Report from Study
  Country: US (occurrence: US)
  Receive Date: 20241210
  Receipt Date: 20250803
  Transmission Date: 20251020
  Serious: Yes (Other)
  Sender: ALEXION PHARMACEUTICALS
  Company Number: US-ASTRAZENECA-202412USA001763US

PATIENT
  Sex: Female

DRUGS (6)
  1. FULVESTRANT [Suspect]
     Active Substance: FULVESTRANT
     Route: 065
  2. FULVESTRANT [Suspect]
     Active Substance: FULVESTRANT
  3. IBRANCE [Suspect]
     Active Substance: PALBOCICLIB
     Indication: Breast cancer female
  4. IBRANCE [Suspect]
     Active Substance: PALBOCICLIB
  5. IBRANCE [Suspect]
     Active Substance: PALBOCICLIB
  6. VERZENIO [Concomitant]
     Active Substance: ABEMACICLIB
     Route: 065

REACTIONS (4)
  - Urticaria [Unknown]
  - Hypotension [Unknown]
  - Aphonia [Unknown]
  - Feeling hot [Recovering/Resolving]
